FAERS Safety Report 23988424 (Version 1)
Quarter: 2024Q2

REPORT INFORMATION
  Report Type: Spontaneous
  Country: FR (occurrence: FR)
  Receive Date: 20240619
  Receipt Date: 20240619
  Transmission Date: 20240716
  Serious: Yes (Hospitalization, Other)
  Sender: FDA-Public Use
  Company Number: None

PATIENT
  Age: 72 Year
  Sex: Male
  Weight: 83 kg

DRUGS (14)
  1. LOVENOX [Suspect]
     Active Substance: ENOXAPARIN SODIUM
     Indication: Thrombosis prophylaxis
     Dosage: 0.4 ML, QD
     Route: 058
     Dates: start: 20240329, end: 20240530
  2. DAPTOMYCIN [Suspect]
     Active Substance: DAPTOMYCIN
     Indication: Septic shock
     Dosage: 850 MG, QD (850 MG QD)
     Route: 042
     Dates: start: 20240415, end: 20240528
  3. DAPTOMYCIN [Suspect]
     Active Substance: DAPTOMYCIN
     Dosage: 850 MG, QOD (850 MG EVERY 48 H)
     Route: 042
     Dates: start: 20240528
  4. COLISTIMETHATE SODIUM [Suspect]
     Active Substance: COLISTIMETHATE SODIUM
     Indication: Pseudomonas infection
     Dosage: 1 DF, QD (3 MIU/DAY 1DF)
     Route: 042
     Dates: start: 20240522, end: 20240528
  5. COLISTIMETHATE SODIUM [Suspect]
     Active Substance: COLISTIMETHATE SODIUM
     Dosage: 1.5 DF, QD (4.5 MIU/DAY 1.5 DF)
     Route: 042
     Dates: start: 20240430, end: 20240521
  6. LANSOPRAZOLE [Suspect]
     Active Substance: LANSOPRAZOLE
     Indication: Oesophagitis
     Dosage: 30 MG, QD (15 MG X2/DAY)
     Route: 048
     Dates: start: 20240327
  7. MEROPENEM [Suspect]
     Active Substance: MEROPENEM
     Indication: Pseudomonas infection
     Dosage: 2 G, QD (1 G X2/DAY)
     Route: 042
     Dates: start: 20240528
  8. MEROPENEM [Suspect]
     Active Substance: MEROPENEM
     Dosage: 3 G, QD (1 G X3/DAY)
     Route: 042
     Dates: start: 20240418, end: 20240528
  9. FERINJECT [Suspect]
     Active Substance: FERRIC CARBOXYMALTOSE
     Indication: Iron deficiency anaemia
     Dosage: 300 MG, QD
     Route: 042
     Dates: start: 20240502, end: 20240502
  10. FERINJECT [Suspect]
     Active Substance: FERRIC CARBOXYMALTOSE
     Dosage: 300 MG, QD
     Route: 042
     Dates: start: 20240504, end: 20240504
  11. FERINJECT [Suspect]
     Active Substance: FERRIC CARBOXYMALTOSE
     Dosage: 300 MG, 1X
     Route: 042
     Dates: start: 20240513, end: 20240513
  12. FERINJECT [Suspect]
     Active Substance: FERRIC CARBOXYMALTOSE
     Dosage: 300 MG, QD
     Route: 042
     Dates: start: 20240515, end: 20240515
  13. FERINJECT [Suspect]
     Active Substance: FERRIC CARBOXYMALTOSE
     Dosage: 300 MG, QD
     Route: 042
     Dates: start: 20240522, end: 20240522
  14. FERINJECT [Suspect]
     Active Substance: FERRIC CARBOXYMALTOSE
     Dosage: 300 MG, QD
     Route: 042
     Dates: start: 20240524, end: 20240524

REACTIONS (1)
  - Drug reaction with eosinophilia and systemic symptoms [Not Recovered/Not Resolved]

NARRATIVE: CASE EVENT DATE: 20240520
